FAERS Safety Report 5889897-6 (Version None)
Quarter: 2008Q3

REPORT INFORMATION
  Report Type: 
  Country: None (occurrence: None)
  Receive Date: 20080919
  Receipt Date: 20080910
  Transmission Date: 20090109
  Serious: Yes (Hospitalization)
  Sender: FDA-Public Use
  Company Number: JP-ABBOTT-08P-087-0475707-00

PATIENT
  Age: 23 Year
  Sex: Male

DRUGS (4)
  1. CLARITHROMYCIN [Suspect]
     Indication: COUGH
     Dosage: NOT REPORTED
     Dates: start: 20040607, end: 20040613
  2. CLARITHROMYCIN [Suspect]
     Indication: PYREXIA
  3. CLARITHROMYCIN [Suspect]
     Indication: HEADACHE
  4. VALACYCLOVIR HYDROCHLORIDE [Suspect]
     Indication: HERPES ZOSTER
     Dosage: NOT REPORTED
     Dates: start: 20040605, end: 20040607

REACTIONS (1)
  - DISSEMINATED CRYPTOCOCCOSIS [None]
